FAERS Safety Report 8480725-1 (Version None)
Quarter: 2012Q2

REPORT INFORMATION
  Report Type: 
  Country: None (occurrence: None)
  Receive Date: 20120626
  Receipt Date: 20120614
  Transmission Date: 20120825
  Serious: Yes (Life-Threatening, Hospitalization, Disabling, Other)
  Sender: FDA-Public Use
  Company Number: 2012SP033045

PATIENT
  Age: 60 Year
  Sex: Male

DRUGS (7)
  1. RIBAVIRIN [Suspect]
     Indication: HEPATITIS C
     Dosage: 500 MG;BID;
  2. ACETAMINOPHEN [Concomitant]
  3. VICTRELIS [Suspect]
     Indication: HEPATITIS C
     Dosage: 800 MG;Q8H; PO
     Route: 048
     Dates: start: 20120504
  4. LACTULOSE [Concomitant]
  5. PEGASYS [Suspect]
     Indication: HEPATITIS C
     Dosage: 180 MCG;QW;
  6. HYDROCHLOROTHIAZIDE [Concomitant]
  7. LISINOPRIL [Concomitant]

REACTIONS (1)
  - ANGIOEDEMA [None]
